FAERS Safety Report 10748685 (Version 3)
Quarter: 2015Q1

REPORT INFORMATION
  Report Type: Report from Study
  Country: DE (occurrence: DE)
  Receive Date: 20150129
  Receipt Date: 20150211
  Transmission Date: 20150721
  Serious: Yes (Hospitalization)
  Sender: FDA-Public Use
  Company Number: DE-CELGENE-DEU-2015012858

PATIENT
  Age: 47 Year
  Sex: Female
  Weight: 79 kg

DRUGS (4)
  1. CYCLOPHOSPHAMIDE. [Suspect]
     Active Substance: CYCLOPHOSPHAMIDE
     Indication: BREAST CANCER
     Route: 041
     Dates: start: 20141209, end: 20150106
  2. ABRAXANE [Suspect]
     Active Substance: PACLITAXEL
     Indication: BREAST CANCER
     Dosage: 125 MILLIGRAM/SQ. METER
     Route: 041
     Dates: start: 20141014, end: 20141202
  3. NEULASTA [Suspect]
     Active Substance: PEGFILGRASTIM
     Indication: BREAST CANCER
     Route: 058
     Dates: start: 20141210, end: 20150107
  4. EPIRUBICIN [Suspect]
     Active Substance: EPIRUBICIN
     Indication: BREAST CANCER
     Route: 041
     Dates: start: 20141209, end: 20150106

REACTIONS (1)
  - Alveolitis [Recovered/Resolved]

NARRATIVE: CASE EVENT DATE: 20150109
